FAERS Safety Report 13591260 (Version 1)
Quarter: 2017Q2

REPORT INFORMATION
  Report Type: Spontaneous
  Country: US (occurrence: US)
  Receive Date: 20170529
  Receipt Date: 20170529
  Transmission Date: 20170830
  Serious: No
  Sender: FDA-Public Use
  Company Number: US-PFIZER INC-2017218793

PATIENT
  Age: 63 Year
  Sex: Male

DRUGS (74)
  1. THORAZINE [Concomitant]
     Active Substance: CHLORPROMAZINE
     Dosage: 50 MG, UNK
     Route: 042
     Dates: start: 20170515
  2. THORAZINE [Concomitant]
     Active Substance: CHLORPROMAZINE
     Dosage: 25 MG, 3X/DAY (EVERY 8 HOURS WITHHOLD DOSE IF: SBP{100, DBP{60)
     Route: 042
     Dates: start: 20170512, end: 20170513
  3. ZOVIRAX [Concomitant]
     Active Substance: ACYCLOVIR
     Dosage: 400 MG, UNK
     Route: 042
     Dates: start: 20170515
  4. HUMALOG [Concomitant]
     Active Substance: INSULIN LISPRO
     Dosage: 2 IU, UNK
     Route: 058
     Dates: start: 20170515
  5. ZYLOPRIM [Concomitant]
     Active Substance: ALLOPURINOL
     Dosage: 300 MG, CYCLIC (ONCE A DAY CYCLE 1)
     Route: 048
     Dates: start: 20170503
  6. MERREM [Concomitant]
     Active Substance: MEROPENEM
     Dosage: 1000 MG, UNK
     Route: 042
     Dates: start: 20170514
  7. PEPCID [Concomitant]
     Active Substance: FAMOTIDINE
     Dosage: 20 MG, UNK (ROUTE: INTRAVENOUS PUSH)
     Route: 042
     Dates: start: 20170514
  8. POTASSIUM CHLORIDE. [Concomitant]
     Active Substance: POTASSIUM CHLORIDE
     Dosage: 40 MEQ, SINGLE (INFUSE AT RATE OF 10 MEQ/HR; SERUM POTASSIUM LESS THAN 3.6 MMOL/L)
     Route: 042
     Dates: start: 20170514, end: 20170514
  9. FAMOTIDINE. [Concomitant]
     Active Substance: FAMOTIDINE
     Dosage: 20 MG, 2X/DAY
  10. GABAPENTIN. [Concomitant]
     Active Substance: GABAPENTIN
     Dosage: 300 MG, 3X/DAY
  11. INSULIN GLARGINE [Concomitant]
     Active Substance: INSULIN GLARGINE
     Dosage: 10 DF, UNK (AT BEDTIME)
  12. DEXAMETHASONE. [Suspect]
     Active Substance: DEXAMETHASONE
     Indication: ACUTE LYMPHOCYTIC LEUKAEMIA
  13. THORAZINE [Concomitant]
     Active Substance: CHLORPROMAZINE
     Dosage: 50 MG, UNK
     Route: 042
     Dates: start: 20170514
  14. THORAZINE [Concomitant]
     Active Substance: CHLORPROMAZINE
     Dosage: 50 MG, UNK
     Route: 042
     Dates: start: 20170515
  15. ZOVIRAX [Concomitant]
     Active Substance: ACYCLOVIR
     Dosage: 400 MG, UNK
     Route: 042
     Dates: start: 20170514
  16. HUMALOG [Concomitant]
     Active Substance: INSULIN LISPRO
     Dosage: 6 IU, UNK
     Route: 058
     Dates: start: 20170515
  17. PEPCID [Concomitant]
     Active Substance: FAMOTIDINE
     Dosage: 20 MG, UNK (ROUTE: INTRAVENOUS PUSH)
     Route: 042
     Dates: start: 20170514
  18. SODIUM CHLORIDE. [Concomitant]
     Active Substance: SODIUM CHLORIDE
     Dosage: 15 ML, UNK (ROUTE: SWISH AND SPIT)
     Dates: start: 20170515
  19. POTASSIUM CHLORIDE. [Concomitant]
     Active Substance: POTASSIUM CHLORIDE
     Dosage: 40 MEQ, UNK
     Route: 042
     Dates: start: 20170514
  20. AZITHROMYCIN ANHYDROUS. [Concomitant]
     Active Substance: AZITHROMYCIN ANHYDROUS
     Dosage: 1000 MG, DAILY
  21. LISINOPRIL. [Concomitant]
     Active Substance: LISINOPRIL
     Dosage: 10 MG, DAILY
  22. VANCOMYCIN [Concomitant]
     Active Substance: VANCOMYCIN
     Dosage: UNK
  23. THORAZINE [Concomitant]
     Active Substance: CHLORPROMAZINE
     Dosage: 50 MG, 3X/DAY (EVERY 8 HOURS WITHHOLD DOSE IF: SBP{100, DBP{60)
     Route: 042
     Dates: start: 20170513
  24. ZOVIRAX [Concomitant]
     Active Substance: ACYCLOVIR
     Dosage: 400 MG, 2X/DAY (EVERY 12 HOURS)
     Route: 042
     Dates: start: 20170512
  25. LIDODERM [Concomitant]
     Active Substance: LIDOCAINE
     Dosage: UNK (PATCH ORIGINALLY APPLIED: BACK-LEFT UPPER)
     Route: 061
     Dates: start: 20170514
  26. NICODERM CQ [Concomitant]
     Active Substance: NICOTINE
     Dosage: 1 DF, UNK (PATCH APPLIED: ARM- RIGHT UPPER)
     Route: 061
     Dates: start: 20170514
  27. SODIUM CHLORIDE. [Concomitant]
     Active Substance: SODIUM CHLORIDE
     Dosage: 15 ML, UNK (ROUTE: SWISH AND SPIT)
     Dates: start: 20170514
  28. MEPRON [Concomitant]
     Active Substance: ATOVAQUONE
     Dosage: 750 MG, UNK
     Route: 048
     Dates: start: 20170515
  29. HUMULIN R [Concomitant]
     Active Substance: INSULIN HUMAN
     Dosage: UNK , 3X/DAY (BEFORE MEALS)
     Dates: start: 20170315
  30. PRAVASTATIN. [Concomitant]
     Active Substance: PRAVASTATIN
     Dosage: 10 MG, DAILY
  31. DEXAMETHASONE. [Suspect]
     Active Substance: DEXAMETHASONE
     Indication: PHILADELPHIA CHROMOSOME POSITIVE
     Dosage: UNK
  32. THORAZINE [Concomitant]
     Active Substance: CHLORPROMAZINE
     Dosage: 50 MG, UNK
     Route: 042
     Dates: start: 20170514
  33. LIDODERM [Concomitant]
     Active Substance: LIDOCAINE
     Dosage: UNK, 1X/DAY (REMOVE PATCH AFTER 12 HOURS (12 HOURS ON AND 12 HOURS OFF). APPLY TO LOW BACK)
     Route: 061
     Dates: start: 20170512
  34. MYCAMINE [Concomitant]
     Active Substance: MICAFUNGIN SODIUM
     Dosage: 50 MG, CYCLIC (ONCE A DAY CYCLE 1)
     Route: 042
     Dates: start: 20170503
  35. MERREM [Concomitant]
     Active Substance: MEROPENEM
     Dosage: 1000 MG, UNK
     Route: 042
     Dates: start: 20170515
  36. PRAVACHOL [Concomitant]
     Active Substance: PRAVASTATIN SODIUM
     Dosage: 10 MG, 1X/DAY
     Route: 048
     Dates: start: 20170503
  37. PRAVACHOL [Concomitant]
     Active Substance: PRAVASTATIN SODIUM
     Dosage: 10 MG, UNK
     Route: 048
     Dates: start: 20170515
  38. NEURONTIN [Concomitant]
     Active Substance: GABAPENTIN
     Dosage: 300 MG, 3X/DAY (EVERY 8 HOURS)
     Route: 048
     Dates: start: 20170504
  39. NEURONTIN [Concomitant]
     Active Substance: GABAPENTIN
     Dosage: 300 MG, UNK
     Route: 048
     Dates: start: 20170515
  40. SODIUM PHOSPHATE [Concomitant]
     Active Substance: SODIUM PHOSPHATE
     Dosage: 15 UNK, UNK
     Route: 042
     Dates: start: 20170514
  41. DILAUDID [Concomitant]
     Active Substance: HYDROMORPHONE HYDROCHLORIDE
     Indication: PAIN
     Dosage: UNK (0.1 MG/HR BY CONTINUOUS IV INFUSION RN; BOLUS DOSE: 0.5 MG EVERY 60 MINUTES)
     Route: 042
     Dates: start: 20170512, end: 20170515
  42. SODIUM CHLORIDE. [Concomitant]
     Active Substance: SODIUM CHLORIDE
     Dosage: UNK, AS NEEDED (ROUTINE SODIUM CHLORIDE 0.9% FLUSH (10 ML); INTRAVENOUS FLUSH EVERY MINUTE)
     Route: 042
     Dates: start: 20170503
  43. THORAZINE [Concomitant]
     Active Substance: CHLORPROMAZINE
     Dosage: 50 MG, UNK
     Route: 042
     Dates: start: 20170514
  44. ZOVIRAX [Concomitant]
     Active Substance: ACYCLOVIR
     Dosage: 400 MG, UNK
     Route: 042
     Dates: start: 20170514
  45. ZOVIRAX [Concomitant]
     Active Substance: ACYCLOVIR
     Dosage: 400 MG, UNK
     Route: 042
     Dates: start: 20170515
  46. SODIUM PHOSPHATE [Concomitant]
     Active Substance: SODIUM PHOSPHATE
     Dosage: 15 MMOL, SINGLE (CONDITIONAL PARAMETER(S): PHOSPHATE LESS THAN 2 MG/DL)
     Route: 042
     Dates: start: 20170514, end: 20170514
  47. TRAZODONE [Concomitant]
     Active Substance: TRAZODONE HYDROCHLORIDE
     Dosage: 100 MG, 1X/DAY (AT BEDTIME)
  48. VINCRISTINE SULFATE. [Suspect]
     Active Substance: VINCRISTINE SULFATE
     Indication: ACUTE LYMPHOCYTIC LEUKAEMIA
  49. PEPCID [Concomitant]
     Active Substance: FAMOTIDINE
     Dosage: 20 MG, UNK (ROUTE: INTRAVENOUS PUSH)
     Route: 042
     Dates: start: 20170515
  50. MEPRON [Concomitant]
     Active Substance: ATOVAQUONE
     Dosage: 750 MG, 2X/DAY
     Route: 048
     Dates: start: 20170503
  51. SODIUM PHOSPHATE [Concomitant]
     Active Substance: SODIUM PHOSPHATE
     Dosage: 15 MMOL, UNK
     Route: 042
     Dates: start: 20170515
  52. POTASSIUM CHLORIDE. [Concomitant]
     Active Substance: POTASSIUM CHLORIDE
     Dosage: UNK
  53. DILAUDID [Concomitant]
     Active Substance: HYDROMORPHONE HYDROCHLORIDE
     Dosage: 25 ML, UNK
     Route: 042
     Dates: start: 20170514
  54. VINCRISTINE SULFATE. [Suspect]
     Active Substance: VINCRISTINE SULFATE
     Indication: PHILADELPHIA CHROMOSOME POSITIVE
     Dosage: UNK
  55. POTASSIUM PHOSPHATE [Concomitant]
     Active Substance: POTASSIUM PHOSPHATE
     Dosage: 30 MMOL, SINGLE
     Route: 042
     Dates: start: 20170514, end: 20170514
  56. HUMALOG [Concomitant]
     Active Substance: INSULIN LISPRO
     Dosage: 2 IU, UNK
     Route: 058
     Dates: start: 20170514
  57. HUMALOG [Concomitant]
     Active Substance: INSULIN LISPRO
     Dosage: 2 IU, UNK
     Route: 058
     Dates: start: 20170514
  58. LIDODERM [Concomitant]
     Active Substance: LIDOCAINE
     Dosage: 1 DF, UNK (1 PATCH; PATCH APPLIED: BACK- LEFT UPPER)
     Route: 061
     Dates: start: 20170514
  59. MERREM [Concomitant]
     Active Substance: MEROPENEM
     Dosage: 1000 MG, 3X/DAY (EVERY 8 HOURS)
     Route: 042
     Dates: start: 20170504
  60. MERREM [Concomitant]
     Active Substance: MEROPENEM
     Dosage: 1000 MG, UNK
     Route: 042
     Dates: start: 20170514
  61. SODIUM CHLORIDE. [Concomitant]
     Active Substance: SODIUM CHLORIDE
     Dosage: 15 ML, UNK (15 ML SWISH AND SPIT 6 TIMES A DAY)
     Route: 048
     Dates: start: 20170503
  62. SODIUM PHOSPHATE [Concomitant]
     Active Substance: SODIUM PHOSPHATE
     Dosage: 15 MMOL, SINGLE (CONDITIONAL PARAMETER(S): PHOSPHATE LESS THAN 2 MG/DL)
     Route: 042
     Dates: start: 20170514, end: 20170514
  63. SODIUM PHOSPHATE [Concomitant]
     Active Substance: SODIUM PHOSPHATE
     Dosage: 15 MMOL, SINGLE (CONDITIONAL PARAMETER(S): PHOSPHATE LESS THAN 2 MG/DL)
     Route: 042
     Dates: start: 20170515, end: 20170515
  64. HUMALOG [Concomitant]
     Active Substance: INSULIN LISPRO
     Dosage: UNK, 3X/DAY
     Route: 058
     Dates: start: 20170512
  65. LIDODERM [Concomitant]
     Active Substance: LIDOCAINE
     Dosage: 1 DF, UNK (1 PATCH; PATCH APPLIED: BACK- LEFT UPPER)
     Route: 061
     Dates: start: 20170515
  66. NICODERM CQ [Concomitant]
     Active Substance: NICOTINE
     Dosage: 1 DF, 1X/DAY
     Route: 061
     Dates: start: 20170511
  67. ZYLOPRIM [Concomitant]
     Active Substance: ALLOPURINOL
     Dosage: 300 MG, UNK
     Route: 048
     Dates: start: 20170515
  68. MYCAMINE [Concomitant]
     Active Substance: MICAFUNGIN SODIUM
     Dosage: 50 MG, UNK
     Route: 042
     Dates: start: 20170514
  69. PEPCID [Concomitant]
     Active Substance: FAMOTIDINE
     Dosage: 20 MG, 2X/DAY (PUSH TWO TIMES A DAY)
     Route: 042
     Dates: start: 20170503
  70. SODIUM CHLORIDE. [Concomitant]
     Active Substance: SODIUM CHLORIDE
     Dosage: UNK, 100 ML/HR; INTRAVENOUS {CONTINUOUS}; RATE: 100 ML/HR
     Route: 042
     Dates: start: 20170503
  71. SODIUM CHLORIDE. [Concomitant]
     Active Substance: SODIUM CHLORIDE
     Dosage: UNK
     Route: 042
     Dates: start: 20170514
  72. SODIUM CHLORIDE. [Concomitant]
     Active Substance: SODIUM CHLORIDE
     Dosage: UNK (ROUTE: INTRAVENOUS FLUSH)
     Route: 042
     Dates: start: 20170515
  73. PIPERACILLIN AND TAZOBACTAM [Concomitant]
     Active Substance: PIPERACILLIN SODIUM\TAZOBACTAM SODIUM
     Dosage: 3.375 G, 4X/DAY (EVERY 6 HOURS)
  74. ENOXAPARIN [Concomitant]
     Active Substance: ENOXAPARIN
     Dosage: 40 MG, 1X/DAY

REACTIONS (1)
  - Neoplasm progression [Unknown]
